FAERS Safety Report 8625065-2 (Version None)
Quarter: 2012Q3

REPORT INFORMATION
  Report Type: 
  Country: None (occurrence: None)
  Receive Date: 20120827
  Receipt Date: 20120821
  Transmission Date: 20120928
  Serious: Yes (Other)
  Sender: FDA-Public Use
  Company Number: US-PFIZER INC-2012205777

PATIENT
  Age: 83 Year
  Sex: Male
  Weight: 69.841 kg

DRUGS (10)
  1. LANOXIN [Concomitant]
     Dosage: 125 MG, UNK
  2. METOPROLOL [Concomitant]
     Indication: HYPERTENSION
     Dosage: 25 MG, UNK
  3. BICALUTAMIDE [Concomitant]
     Dosage: 150 MG (THREE 50MG), 1X/DAY
  4. DIOVAN [Concomitant]
     Dosage: 80 MG, 1X/DAY
  5. PRILOSEC [Concomitant]
     Dosage: UNK, 1X/DAY
  6. ASPIRIN [Concomitant]
     Dosage: 81 MG, 1X/DAY
  7. TOVIAZ [Suspect]
     Indication: HYPERTONIC BLADDER
     Dosage: 8 MG, 1X/DAY
     Route: 048
     Dates: start: 20120815
  8. ZOLPIDEM [Concomitant]
     Dosage: 10 MG (TWO 5MG ), 1X/DAY
  9. FLUOXETINE [Concomitant]
     Dosage: 10 MG, 1X/DAY
  10. LOVASTATIN [Concomitant]
     Dosage: 20 MG, 1X/DAY

REACTIONS (2)
  - ABDOMINAL DISCOMFORT [None]
  - HYPERTENSION [None]
